FAERS Safety Report 9691386 (Version 1)
Quarter: 2013Q4

REPORT INFORMATION
  Report Type: Spontaneous
  Country: BR (occurrence: BR)
  Receive Date: 20131115
  Receipt Date: 20131115
  Transmission Date: 20140711
  Serious: Yes (Other)
  Sender: FDA-Public Use
  Company Number: BR-PFIZER INC-2013324849

PATIENT
  Age: 61 Year
  Sex: Female
  Weight: 65 kg

DRUGS (1)
  1. LYRICA [Suspect]
     Indication: PAIN
     Dosage: 1 ^TABLET^ (75 MG), 1X/DAY
     Route: 048
     Dates: start: 20131111

REACTIONS (5)
  - Activities of daily living impaired [Unknown]
  - Asthenia [Unknown]
  - Hypoaesthesia oral [Unknown]
  - Head discomfort [Unknown]
  - Pain [Unknown]
